FAERS Safety Report 4701771-7 (Version None)
Quarter: 2005Q2

REPORT INFORMATION
  Report Type: 
  Country: None (occurrence: None)
  Receive Date: 20050627
  Receipt Date: 20050614
  Transmission Date: 20051028
  Serious: Yes (Hospitalization)
  Sender: FDA-Public Use
  Company Number: 2005BI007356

PATIENT
  Age: 65 Year
  Sex: Female

DRUGS (14)
  1. AVONEX [Suspect]
     Indication: MULTIPLE SCLEROSIS
     Dosage: IM
     Route: 030
     Dates: start: 19960101
  2. FOSAMAX [Concomitant]
  3. BACLOFEN [Concomitant]
  4. CENTRUM [Concomitant]
  5. GLUCOVANCE [Concomitant]
  6. ATIVAN [Concomitant]
  7. OSCAL [Concomitant]
  8. LEXAPRO [Concomitant]
  9. ACTOS [Concomitant]
  10. DIOVAN [Concomitant]
  11. TRICOR [Concomitant]
  12. ASCORBIC ACID [Concomitant]
  13. LOTREL [Concomitant]
  14. DOCUSATE SODIUM [Concomitant]

REACTIONS (3)
  - SPINAL COLUMN STENOSIS [None]
  - SPINAL CORD COMPRESSION [None]
  - SURGICAL PROCEDURE REPEATED [None]
